FAERS Safety Report 8477779-5 (Version None)
Quarter: 2012Q2

REPORT INFORMATION
  Report Type: 
  Country: None (occurrence: None)
  Receive Date: 20120629
  Receipt Date: 20120221
  Transmission Date: 20120825
  Serious: No
  Sender: FDA-Public Use
  Company Number: US-GLAXOSMITHKLINE-A0967083A

PATIENT
  Sex: Female

DRUGS (3)
  1. HEARTBURN MEDICATION [Concomitant]
  2. UNSPECIFIED MEDICATION [Concomitant]
  3. ALBUTEROL [Suspect]
     Indication: PRODUCT USED FOR UNKNOWN INDICATION
     Route: 065

REACTIONS (3)
  - ILL-DEFINED DISORDER [None]
  - ABDOMINAL DISTENSION [None]
  - DYSPNOEA [None]
